FAERS Safety Report 18230600 (Version 1)
Quarter: 2020Q3

REPORT INFORMATION
  Report Type: Spontaneous
  Country: FR (occurrence: FR)
  Receive Date: 20200904
  Receipt Date: 20200904
  Transmission Date: 20201103
  Serious: Yes (Hospitalization)
  Sender: FDA-Public Use
  Company Number: FR-TEVA-2020-FR-1822448

PATIENT
  Age: 46 Year
  Sex: Female
  Weight: 63 kg

DRUGS (8)
  1. NEBIVOLOL. [Suspect]
     Active Substance: NEBIVOLOL
     Indication: ACUTE CORONARY SYNDROME
     Dosage: 5 MG
     Route: 048
     Dates: start: 20200620
  2. BRILIQUE 90 MG, COMPRIME PELLICULE [Concomitant]
     Active Substance: TICAGRELOR
     Route: 048
  3. LEXOMIL 6 MG, COMPRIME QUADRISECABLE [Concomitant]
     Active Substance: BROMAZEPAM
     Indication: DEPRESSION
     Dosage: ON DEMAND,
     Route: 048
  4. PRAVASTATINE SODIQUE [Concomitant]
     Active Substance: PRAVASTATIN SODIUM
     Route: 048
  5. SEROPLEX 5 MG, COMPRIME PELLICULE [Suspect]
     Active Substance: ESCITALOPRAM OXALATE
     Indication: DEPRESSION
     Dosage: 1 DOSAGE FORM
     Route: 048
  6. KARDEGIC [Concomitant]
     Active Substance: ASPIRIN DL-LYSINE
     Route: 048
  7. EZETROL 10 MG, COMPRIME [Concomitant]
     Active Substance: EZETIMIBE
     Route: 048
  8. LANSOPRAZOLE. [Concomitant]
     Active Substance: LANSOPRAZOLE
     Route: 048

REACTIONS (3)
  - Vertigo [Recovering/Resolving]
  - Bradycardia [Recovering/Resolving]
  - Palpitations [Recovering/Resolving]

NARRATIVE: CASE EVENT DATE: 20200626
